FAERS Safety Report 5023758-X (Version None)
Quarter: 2006Q2

REPORT INFORMATION
  Report Type: 
  Country: None (occurrence: None)
  Receive Date: 20060606
  Receipt Date: 20060522
  Transmission Date: 20061013
  Serious: Yes (Life-Threatening, Hospitalization)
  Sender: FDA-Public Use
  Company Number: HQWYE361620OCT03

PATIENT
  Age: 61 Year
  Sex: Female
  Weight: 289 kg

DRUGS (4)
  1. PREMPRO [Suspect]
     Indication: HORMONE REPLACEMENT THERAPY
     Dosage: 0.625MG/2.5MG TABLET DAILY, ORAL
     Route: 048
     Dates: start: 19981006, end: 20020724
  2. ESTRATEST [Suspect]
     Indication: HORMONE REPLACEMENT THERAPY
     Dosage: 1.25MG TABLET DAILY, ORAL
     Route: 048
     Dates: start: 19980601
  3. PREMARIN [Suspect]
     Indication: HORMONE REPLACEMENT THERAPY
     Dosage: ORAL
     Route: 048
  4. PROVERA [Suspect]
     Indication: HORMONE REPLACEMENT THERAPY
     Dosage: 2.5MG FIRST 5 DAYS EACH MONTH, ORAL
     Route: 048
     Dates: start: 19980601

REACTIONS (13)
  - ACUTE MYOCARDIAL INFARCTION [None]
  - CARDIO-RESPIRATORY ARREST [None]
  - CARDIOMEGALY [None]
  - CORONARY ARTERY OCCLUSION [None]
  - CORONARY ARTERY STENOSIS [None]
  - ISCHAEMIA [None]
  - LYMPHADENOPATHY MEDIASTINAL [None]
  - OESOPHAGITIS [None]
  - PULMONARY OEDEMA [None]
  - THERAPY NON-RESPONDER [None]
  - VENTRICULAR EXTRASYSTOLES [None]
  - VENTRICULAR FIBRILLATION [None]
  - VENTRICULAR TACHYCARDIA [None]
